FAERS Safety Report 7964933-1 (Version None)
Quarter: 2011Q4

REPORT INFORMATION
  Report Type: 
  Country: None (occurrence: None)
  Receive Date: 20111208
  Receipt Date: 20111208
  Transmission Date: 20120403
  Serious: No
  Sender: FDA-Public Use
  Company Number: None

PATIENT
  Age: 55 Year
  Sex: Female
  Weight: 69.399 kg

DRUGS (3)
  1. BENZONATATE [Suspect]
     Indication: COUGH
     Dosage: 1 CAPSULE
     Route: 048
     Dates: start: 20111206, end: 20111207
  2. VENTOLIN HFA [Concomitant]
     Route: 048
  3. ACETAMINOPHEN W/ CODEINE NO. 3 [Concomitant]
     Route: 048

REACTIONS (3)
  - HYPOAESTHESIA [None]
  - PARAESTHESIA [None]
  - HYPERSENSITIVITY [None]
